FAERS Safety Report 24352783 (Version 1)
Quarter: 2024Q3

REPORT INFORMATION
  Report Type: Spontaneous
  Country: US (occurrence: None)
  Receive Date: 20240922
  Receipt Date: 20240922
  Transmission Date: 20241017
  Serious: No
  Sender: Public
  Company Number: None

PATIENT
  Age: 55 Year
  Sex: Female
  Weight: 143.8 kg

DRUGS (14)
  1. PAXLOVID [Suspect]
     Active Substance: NIRMATRELVIR\RITONAVIR
     Indication: COVID-19
     Dosage: 3 TABLETS TWICE A DAY ORAL
     Route: 048
     Dates: start: 20240816, end: 20240821
  2. LEVOTHYROXINE [Concomitant]
     Active Substance: LEVOTHYROXINE\LEVOTHYROXINE SODIUM
  3. ALBUTEROL [Concomitant]
     Active Substance: ALBUTEROL
  4. TRAMADOL [Concomitant]
     Active Substance: TRAMADOL
  5. HUMULIN NOS [Concomitant]
     Active Substance: INSULIN HUMAN
  6. FAMOTIDINE [Concomitant]
     Active Substance: FAMOTIDINE
  7. VYVANSE [Concomitant]
     Active Substance: LISDEXAMFETAMINE DIMESYLATE
  8. METFORMIN [Concomitant]
     Active Substance: METFORMIN HYDROCHLORIDE
  9. SIMVASTATIN [Concomitant]
     Active Substance: SIMVASTATIN
  10. VITAMINS [Concomitant]
     Active Substance: VITAMINS
  11. MAGNESIUM GLYCINATE [Concomitant]
     Active Substance: MAGNESIUM GLYCINATE
  12. BIOTIN [Concomitant]
     Active Substance: BIOTIN
  13. VITAMIN D [Concomitant]
     Active Substance: VITAMIN D NOS
  14. FISH OIL [Concomitant]
     Active Substance: FISH OIL

REACTIONS (3)
  - Taste disorder [None]
  - Dysgeusia [None]
  - Breath odour [None]

NARRATIVE: CASE EVENT DATE: 20240816
